FAERS Safety Report 7300331-1 (Version None)
Quarter: 2011Q1

REPORT INFORMATION
  Report Type: 
  Country: None (occurrence: None)
  Receive Date: 20110217
  Receipt Date: 20110204
  Transmission Date: 20110831
  Serious: No
  Sender: FDA-Public Use
  Company Number: US-BIOGENIDEC-2011BI005353

PATIENT
  Age: 41 Year
  Sex: Male

DRUGS (4)
  1. AVONEX [Concomitant]
     Indication: MULTIPLE SCLEROSIS
     Route: 030
     Dates: start: 20050501
  2. AVONEX [Concomitant]
     Route: 030
     Dates: start: 20100501
  3. AVONEX [Concomitant]
     Route: 030
     Dates: start: 20000807, end: 20030111
  4. TYSABRI [Suspect]
     Indication: MULTIPLE SCLEROSIS
     Route: 042
     Dates: start: 20100517

REACTIONS (1)
  - RASH [None]
